FAERS Safety Report 13943756 (Version 1)
Quarter: 2017Q3

REPORT INFORMATION
  Report Type: Report from Study
  Country: DE (occurrence: DE)
  Receive Date: 20170907
  Receipt Date: 20170907
  Transmission Date: 20171128
  Serious: Yes (Hospitalization)
  Sender: FDA-Public Use
  Company Number: DE-ROCHE-1896070

PATIENT
  Age: 48 Year
  Sex: Male

DRUGS (10)
  1. COTRIMOXAZOL [Concomitant]
     Active Substance: SULFAMETHOXAZOLE\TRIMETHOPRIM
     Route: 065
     Dates: start: 20160824
  2. NEBIVOLOL. [Concomitant]
     Active Substance: NEBIVOLOL
     Route: 065
     Dates: start: 20161130
  3. OBINUTUZUMAB. [Suspect]
     Active Substance: OBINUTUZUMAB
     Indication: CHRONIC LYMPHOCYTIC LEUKAEMIA
     Dosage: DATE OF LAST DOSE: 25/JAN/2017
     Route: 042
     Dates: start: 20161102
  4. RAMIPRIL. [Concomitant]
     Active Substance: RAMIPRIL
     Route: 065
     Dates: start: 2004
  5. PHENPROCOUMON [Concomitant]
     Active Substance: PHENPROCOUMON
     Route: 065
     Dates: start: 20161213
  6. IDELALISIB [Suspect]
     Active Substance: IDELALISIB
     Indication: CHRONIC LYMPHOCYTIC LEUKAEMIA
     Dosage: DATE OF LAST DOSE: 08/FEB/2017
     Route: 048
     Dates: start: 20161130
  7. NEBIVOLOL. [Concomitant]
     Active Substance: NEBIVOLOL
     Route: 065
     Dates: start: 2004
  8. SIMVASTATIN. [Concomitant]
     Active Substance: SIMVASTATIN
     Route: 065
     Dates: start: 20161130
  9. BENDAMUSTINE [Suspect]
     Active Substance: BENDAMUSTINE
     Indication: CHRONIC LYMPHOCYTIC LEUKAEMIA
     Dosage: DATE OF LAST DOSE: 20/SEP/2016
     Route: 042
     Dates: start: 20160823
  10. OMEPRAZOLE. [Concomitant]
     Active Substance: OMEPRAZOLE
     Route: 065
     Dates: start: 20161130

REACTIONS (3)
  - Catheterisation cardiac [Recovered/Resolved]
  - Atrial fibrillation [Recovered/Resolved]
  - Cardiac ablation [Recovered/Resolved]

NARRATIVE: CASE EVENT DATE: 20161126
